FAERS Safety Report 4847010-8 (Version None)
Quarter: 2005Q4

REPORT INFORMATION
  Report Type: 
  Country: None (occurrence: None)
  Receive Date: 20051207
  Receipt Date: 20051128
  Transmission Date: 20060501
  Serious: Yes (Other)
  Sender: FDA-Public Use
  Company Number: JP-JNJFOC-20051106647

PATIENT
  Age: 80 Year
  Sex: Female

DRUGS (3)
  1. RISPERDAL [Suspect]
     Route: 048
  2. RISPERDAL [Suspect]
     Indication: DELIRIUM
     Route: 048
  3. CLOTIAZEPAM [Concomitant]
     Indication: DELIRIUM
     Route: 048

REACTIONS (2)
  - HYPOXIC ENCEPHALOPATHY [None]
  - RESPIRATORY ARREST [None]
